FAERS Safety Report 10051054 (Version 1)
Quarter: 2014Q2

REPORT INFORMATION
  Report Type: Report from Study
  Country: US (occurrence: US)
  Receive Date: 20140401
  Receipt Date: 20140401
  Transmission Date: 20141212
  Serious: Yes (Hospitalization)
  Sender: FDA-Public Use
  Company Number: US-JNJFOC-20140315339

PATIENT
  Age: 51 Year
  Sex: Female
  Weight: 97.98 kg

DRUGS (10)
  1. REMICADE [Suspect]
     Indication: PSORIATIC ARTHROPATHY
     Route: 042
     Dates: start: 201312
  2. REMICADE [Suspect]
     Indication: PSORIATIC ARTHROPATHY
     Route: 042
     Dates: start: 20140207
  3. REMICADE [Suspect]
     Indication: PSORIATIC ARTHROPATHY
     Route: 042
     Dates: start: 2004, end: 201312
  4. LOSARTAN [Concomitant]
     Indication: BLOOD PRESSURE
     Route: 048
     Dates: start: 201210
  5. PREDNISONE [Concomitant]
     Indication: INFLAMMATION
     Route: 048
     Dates: start: 2004
  6. PROTONIX [Concomitant]
     Indication: ABDOMINAL DISCOMFORT
     Route: 048
     Dates: start: 2010
  7. MIRAPEX [Concomitant]
     Indication: RESTLESS LEGS SYNDROME
     Route: 048
     Dates: start: 2004
  8. HYDROCODONE [Concomitant]
     Indication: ARTHRALGIA
     Dosage: AS NEEDED
     Route: 048
     Dates: end: 2011
  9. HYDROCODONE [Concomitant]
     Indication: ARTHRALGIA
     Dosage: 10 TO 325 MG AS NEEDED
     Route: 048
     Dates: start: 2011
  10. HYDROCODONE [Concomitant]
     Indication: ARTHRALGIA
     Dosage: AS NEEDED
     Route: 048
     Dates: start: 2004

REACTIONS (8)
  - Pulmonary embolism [Recovered/Resolved]
  - Drug tolerance [Not Recovered/Not Resolved]
  - Pneumonia [Recovered/Resolved]
  - Bronchitis [Recovered/Resolved]
  - Psoriasis [Unknown]
  - Pain [Not Recovered/Not Resolved]
  - Joint injury [Unknown]
  - Musculoskeletal stiffness [Unknown]
